FAERS Safety Report 6058078-8 (Version None)
Quarter: 2009Q1

REPORT INFORMATION
  Report Type: 
  Country: None (occurrence: None)
  Receive Date: 20090128
  Receipt Date: 20090114
  Transmission Date: 20090719
  Serious: No
  Sender: FDA-Public Use
  Company Number: RENA-1000314

PATIENT
  Age: 29 Year
  Sex: Male

DRUGS (1)
  1. RENAGEL [Suspect]
     Indication: HYPERPHOSPHATAEMIA
     Dosage: 2.4 G, TID, ORAL
     Route: 048
     Dates: start: 20071201

REACTIONS (3)
  - BIOPSY SITE UNSPECIFIED ABNORMAL [None]
  - DRUG INEFFECTIVE [None]
  - NO ADVERSE EVENT [None]
